FAERS Safety Report 7957874-7 (Version None)
Quarter: 2011Q4

REPORT INFORMATION
  Report Type: 
  Country: None (occurrence: None)
  Receive Date: 20111201
  Receipt Date: 20111118
  Transmission Date: 20120403
  Serious: Yes (Other)
  Sender: FDA-Public Use
  Company Number: PHHY2011PE101583

PATIENT
  Age: 81 Year
  Sex: Male

DRUGS (1)
  1. VISUDYNE [Suspect]
     Indication: AGE-RELATED MACULAR DEGENERATION
     Dosage: 24 ML ONCE IV
     Route: 042
     Dates: start: 20111118, end: 20111118

REACTIONS (5)
  - NECK PAIN [None]
  - CHEST PAIN [None]
  - BACK PAIN [None]
  - CONDITION AGGRAVATED [None]
  - HYPERTENSION [None]
